FAERS Safety Report 4874924-5 (Version None)
Quarter: 2006Q1

REPORT INFORMATION
  Report Type: 
  Country: None (occurrence: None)
  Receive Date: 20060105
  Receipt Date: 20051220
  Transmission Date: 20060701
  Serious: Yes (Hospitalization)
  Sender: FDA-Public Use
  Company Number: DSA_27582_2005

PATIENT
  Age: 54 Year
  Sex: Female

DRUGS (2)
  1. VASOTEC [Suspect]
     Indication: BLOOD PRESSURE
     Dosage: DF
  2. ARTHRITIS MEDICATION [Concomitant]

REACTIONS (2)
  - CHEST PAIN [None]
  - DRUG EFFECT DECREASED [None]
